FAERS Safety Report 9174944 (Version 1)
Quarter: 2013Q1

REPORT INFORMATION
  Report Type: Spontaneous
  Country: US (occurrence: US)
  Receive Date: 20130320
  Receipt Date: 20130320
  Transmission Date: 20140127
  Serious: Yes (Other)
  Sender: FDA-Public Use
  Company Number: US-ASTRAZENECA-2013SE16411

PATIENT
  Age: 59 Year
  Sex: Female
  Weight: 49.9 kg

DRUGS (5)
  1. NEXIUM [Suspect]
     Indication: GASTROOESOPHAGEAL REFLUX DISEASE
     Route: 048
  2. LISINOPRIL [Suspect]
     Indication: CARDIAC DISORDER
     Route: 065
     Dates: start: 1999
  3. SPINALACTONE [Concomitant]
     Indication: CARDIAC DISORDER
     Dates: start: 1999
  4. COREG [Concomitant]
     Indication: CARDIAC DISORDER
     Dates: start: 1999
  5. LASIX [Concomitant]
     Indication: CARDIAC DISORDER
     Dates: start: 1999

REACTIONS (5)
  - Cardiac failure congestive [Unknown]
  - Adverse event [Unknown]
  - Gastrooesophageal reflux disease [Unknown]
  - Malaise [Unknown]
  - Drug dose omission [Unknown]
